FAERS Safety Report 4930930-3 (Version None)
Quarter: 2006Q1

REPORT INFORMATION
  Report Type: 
  Country: None (occurrence: None)
  Receive Date: 20060227
  Receipt Date: 20060215
  Transmission Date: 20060701
  Serious: Yes (Hospitalization, Other)
  Sender: FDA-Public Use
  Company Number: 2003-06-3096

PATIENT
  Age: 32 Year
  Sex: Female
  Weight: 63.9572 kg

DRUGS (2)
  1. PEG-INTRON [Suspect]
     Indication: HEPATITIS C
     Dosage: 86 MCG QWK SUBCUTANEOUS
     Route: 058
     Dates: start: 20030606, end: 20030620
  2. REBETOL [Suspect]
     Indication: HEPATITIS C
     Dosage: 800 MG QD ORAL
     Route: 048
     Dates: start: 20030606, end: 20030622

REACTIONS (17)
  - ABDOMINAL PAIN LOWER [None]
  - AMNIOTIC FLUID VOLUME DECREASED [None]
  - BENIGN HYDATIDIFORM MOLE [None]
  - CHORIOAMNIONITIS [None]
  - CHROMOSOME ABNORMALITY [None]
  - DRUG EXPOSURE DURING PREGNANCY [None]
  - FOETAL GROWTH RETARDATION [None]
  - FOETAL HEART RATE ABNORMAL [None]
  - FOETAL MOVEMENTS DECREASED [None]
  - HYPERTENSION [None]
  - INTRA-UTERINE DEATH [None]
  - METRORRHAGIA [None]
  - PLACENTAL DISORDER [None]
  - PREGNANCY [None]
  - PREMATURE SEPARATION OF PLACENTA [None]
  - RETROPLACENTAL HAEMATOMA [None]
  - STILLBIRTH [None]
